FAERS Safety Report 9830841 (Version 2)
Quarter: 2014Q2

REPORT INFORMATION
  Report Type: Spontaneous
  Country: AU (occurrence: AU)
  Receive Date: 20140120
  Receipt Date: 20140516
  Transmission Date: 20141212
  Serious: Yes (Other)
  Sender: FDA-Public Use
  Company Number: AU-ABBVIE-14P-008-1188493-00

PATIENT
  Age: 70 Year
  Sex: Male

DRUGS (3)
  1. LUCRIN DEPOT [Suspect]
     Indication: PROSTATE CANCER
     Route: 058
     Dates: start: 200907
  2. LUCRIN DEPOT [Suspect]
     Dates: start: 201203
  3. HEART MEDICATION [Suspect]
     Indication: CARDIAC FIBRILLATION
     Dates: start: 200910

REACTIONS (6)
  - Cardiac fibrillation [Unknown]
  - Muscular weakness [Recovering/Resolving]
  - Muscle atrophy [Recovering/Resolving]
  - Dyspnoea exertional [Not Recovered/Not Resolved]
  - Lethargy [Not Recovered/Not Resolved]
  - Libido decreased [Not Recovered/Not Resolved]
